FAERS Safety Report 7473198-9 (Version None)
Quarter: 2011Q2

REPORT INFORMATION
  Report Type: 
  Country: None (occurrence: None)
  Receive Date: 20110511
  Receipt Date: 20110422
  Transmission Date: 20111010
  Serious: Yes (Other)
  Sender: FDA-Public Use
  Company Number: A0924839A

PATIENT
  Sex: Female

DRUGS (2)
  1. RITUXAN [Concomitant]
  2. PROMACTA [Suspect]
     Dosage: 50MG PER DAY
     Dates: start: 20091119, end: 20101209

REACTIONS (3)
  - DRUG INEFFECTIVE [None]
  - THROMBOCYTOPENIA [None]
  - HAEMORRHAGE [None]
